FAERS Safety Report 18466614 (Version 1)
Quarter: 2020Q4

REPORT INFORMATION
  Report Type: Spontaneous
  Country: GB (occurrence: GB)
  Receive Date: 20201105
  Receipt Date: 20201105
  Transmission Date: 20210114
  Serious: Yes (Hospitalization)
  Sender: FDA-Public Use
  Company Number: GB-ACCORD-207319

PATIENT
  Age: 26 Year
  Sex: Male
  Weight: 80 kg

DRUGS (1)
  1. SERTRALINE [Suspect]
     Active Substance: SERTRALINE HYDROCHLORIDE
     Indication: DEPRESSED MOOD
     Route: 048
     Dates: start: 20200903, end: 20200924

REACTIONS (13)
  - Pyrexia [Recovering/Resolving]
  - Dyspnoea [Not Recovered/Not Resolved]
  - Heart rate increased [Not Recovered/Not Resolved]
  - Vomiting [Recovering/Resolving]
  - Abnormal loss of weight [Recovering/Resolving]
  - Malaise [Recovering/Resolving]
  - Serotonin syndrome [Recovering/Resolving]
  - Headache [Recovering/Resolving]
  - Dehydration [Recovering/Resolving]
  - Lethargy [Recovering/Resolving]
  - Muscle twitching [Recovering/Resolving]
  - Tremor [Recovering/Resolving]
  - Diarrhoea [Recovering/Resolving]

NARRATIVE: CASE EVENT DATE: 20200905
